FAERS Safety Report 11953814 (Version 3)
Quarter: 2016Q2

REPORT INFORMATION
  Report Type: Spontaneous
  Country: US (occurrence: US)
  Receive Date: 20160126
  Receipt Date: 20160506
  Transmission Date: 20160815
  Serious: Yes (Hospitalization, Other)
  Sender: FDA-Public Use
  Company Number: US-PFIZER INC-2016023852

PATIENT
  Age: 73 Year
  Sex: Female

DRUGS (2)
  1. PREMARIN [Suspect]
     Active Substance: ESTROGENS, CONJUGATED
     Indication: HYSTERECTOMY
  2. PREMARIN [Suspect]
     Active Substance: ESTROGENS, CONJUGATED
     Indication: OEDEMA
     Dosage: 1.25, 1X/DAY
     Dates: start: 198906, end: 201501

REACTIONS (8)
  - Vulvovaginal dryness [Not Recovered/Not Resolved]
  - Gastric disorder [Unknown]
  - Limb discomfort [Unknown]
  - Hair colour changes [Not Recovered/Not Resolved]
  - Ear infection [Unknown]
  - Dry skin [Not Recovered/Not Resolved]
  - Product use issue [Unknown]
  - Feeling abnormal [Not Recovered/Not Resolved]

NARRATIVE: CASE EVENT DATE: 2015
